FAERS Safety Report 23654640 (Version 1)
Quarter: 2024Q1

REPORT INFORMATION
  Report Type: Spontaneous
  Country: US (occurrence: US)
  Receive Date: 20240320
  Receipt Date: 20240320
  Transmission Date: 20240409
  Serious: No
  Sender: FDA-Public Use
  Company Number: US-AMGEN-USASP2024052736

PATIENT
  Age: 87 Year
  Sex: Male

DRUGS (1)
  1. REPATHA [Suspect]
     Active Substance: EVOLOCUMAB
     Indication: Myocardial infarction
     Dosage: 420 MILLIGRAM, QMO
     Route: 058
     Dates: start: 2023

REACTIONS (3)
  - Dyspnoea [Recovered/Resolved]
  - Low density lipoprotein increased [Unknown]
  - Ill-defined disorder [Unknown]
